FAERS Safety Report 10094326 (Version 2)
Quarter: 2014Q2

REPORT INFORMATION
  Report Type: Spontaneous
  Country: US (occurrence: US)
  Receive Date: 20140422
  Receipt Date: 20140422
  Transmission Date: 20141212
  Serious: No
  Sender: FDA-Public Use
  Company Number: US-BRISTOL-MYERS SQUIBB COMPANY-18816744

PATIENT
  Age: 67 Year
  Sex: Female
  Weight: 76.19 kg

DRUGS (7)
  1. HYDREA [Suspect]
     Indication: POLYCYTHAEMIA VERA
     Dosage: 3 ALTERNATIVELY WITH 4 TABLETS;ONGOING
     Route: 048
     Dates: start: 2006
  2. ANOPYRIN [Concomitant]
  3. LESCOL [Concomitant]
  4. ATIVAN [Concomitant]
  5. DEXIR [Concomitant]
  6. AVAPRO [Concomitant]
  7. PLAVIX [Concomitant]

REACTIONS (2)
  - Therapeutic response decreased [Not Recovered/Not Resolved]
  - Off label use [Unknown]
